FAERS Safety Report 5082841-3 (Version None)
Quarter: 2006Q3

REPORT INFORMATION
  Report Type: 
  Country: None (occurrence: None)
  Receive Date: 20060817
  Receipt Date: 20060808
  Transmission Date: 20061208
  Serious: Yes (Other)
  Sender: FDA-Public Use
  Company Number: DE-ABBOTT-06P-062-0340039-00

PATIENT
  Sex: Female

DRUGS (6)
  1. ERGENYL CHRONO TABLETS [Suspect]
     Indication: DRUG USE FOR UNKNOWN INDICATION
     Route: 048
     Dates: start: 20060710
  2. ERGENYL CHRONO TABLETS [Suspect]
     Route: 048
     Dates: start: 20040101
  3. ERGENYL CHRONO TABLETS [Suspect]
     Route: 048
  4. LORAZEPAM [Concomitant]
     Indication: DRUG USE FOR UNKNOWN INDICATION
     Route: 048
  5. LEVOTHYROXINE SODIUM [Concomitant]
     Indication: DRUG USE FOR UNKNOWN INDICATION
     Route: 048
  6. ESTRADIOL INJ [Concomitant]
     Indication: DRUG USE FOR UNKNOWN INDICATION
     Dosage: PLASTER 2/WEEK
     Route: 062
     Dates: start: 20060101

REACTIONS (1)
  - MENORRHAGIA [None]
